FAERS Safety Report 12855868 (Version 1)
Quarter: 2016Q4

REPORT INFORMATION
  Report Type: Spontaneous
  Country: PL (occurrence: None)
  Receive Date: 20161014
  Receipt Date: 20161014
  Transmission Date: 20170207
  Serious: Yes (Hospitalization)
  Sender: FDA-Public Use
  Company Number: PL2016K0296LIT

PATIENT
  Age: 65 Year
  Sex: Male

DRUGS (4)
  1. VERAPAMIL [Suspect]
     Active Substance: VERAPAMIL HYDROCHLORIDE
     Indication: HYPERTENSION
  2. LEVOTHYROXINE SODIUM. [Concomitant]
     Active Substance: LEVOTHYROXINE SODIUM
  3. ENALAPRIL GENERIC (ENALAPRIL) UNKNOWN [Suspect]
     Active Substance: ENALAPRIL
     Indication: HYPERTENSION
  4. LITHIUM. [Suspect]
     Active Substance: LITHIUM
     Indication: BIPOLAR DISORDER

REACTIONS (7)
  - Drug interaction [None]
  - Nephrogenic diabetes insipidus [None]
  - Hypothyroidism [None]
  - Pancreatitis acute [None]
  - Toxicity to various agents [None]
  - Hyperparathyroidism [None]
  - Hyperparathyroidism primary [None]
